FAERS Safety Report 9444919 (Version 1)
Quarter: 2013Q3

REPORT INFORMATION
  Report Type: Spontaneous
  Country: US (occurrence: US)
  Receive Date: 20130807
  Receipt Date: 20130807
  Transmission Date: 20140515
  Serious: Yes (Other)
  Sender: FDA-Public Use
  Company Number: PHHY2013US082822

PATIENT
  Age: 57 Year
  Sex: Female

DRUGS (16)
  1. FLUOXETINE [Suspect]
     Dosage: 40 MG, DAILY
  2. TRAMADOL [Interacting]
  3. MILNACIPRAN [Suspect]
     Indication: FIBROMYALGIA
     Dosage: 12.5 MG, QD
  4. MILNACIPRAN [Suspect]
     Dosage: 12.5 MG, BID
  5. MILNACIPRAN [Suspect]
     Dosage: 25 MG, BID
  6. MILNACIPRAN [Suspect]
     Dosage: 50 MG, BID
  7. DOXEPIN [Concomitant]
  8. ALPRAZOLAM [Concomitant]
  9. ZOLPIDEM [Concomitant]
  10. ZOLEDRONIC ACID [Concomitant]
  11. ANASTROZOLE [Concomitant]
  12. RANITIDINE [Concomitant]
  13. LEVOCETIRIZINE [Concomitant]
  14. VITAMIN D [Concomitant]
  15. FERROUS GLUCONATE [Concomitant]
  16. DOXAZOSIN [Concomitant]

REACTIONS (8)
  - Sinus tachycardia [Recovered/Resolved]
  - Blood pressure increased [Recovered/Resolved]
  - Body temperature increased [Recovered/Resolved]
  - Restlessness [Recovered/Resolved]
  - Diarrhoea [Recovered/Resolved]
  - Nausea [Recovered/Resolved]
  - Myalgia [Recovered/Resolved]
  - Toxicity to various agents [Unknown]
